FAERS Safety Report 11771175 (Version 1)
Quarter: 2015Q4

REPORT INFORMATION
  Report Type: Spontaneous
  Country: CN (occurrence: CN)
  Receive Date: 20151124
  Receipt Date: 20151124
  Transmission Date: 20160304
  Serious: Yes (Other)
  Sender: FDA-Public Use
  Company Number: CN-ALKEM-001339

PATIENT
  Age: 63 Year
  Sex: Male

DRUGS (1)
  1. CEFUROXIME. [Suspect]
     Active Substance: CEFUROXIME
     Indication: ANTIBIOTIC PROPHYLAXIS
     Dosage: 0.1 ML OF 10 MG/ML SOLUTION OF INTRA-CAMERAL CEFUROXIME SOLUTION WAS INJECTED INTO ARTERIOR CHAMBER

REACTIONS (3)
  - Retinal detachment [Recovered/Resolved]
  - Toxicity to various agents [Recovered/Resolved]
  - Macular oedema [Recovered/Resolved]
